FAERS Safety Report 12649007 (Version 3)
Quarter: 2016Q4

REPORT INFORMATION
  Report Type: Spontaneous
  Country: GB (occurrence: GB)
  Receive Date: 20160812
  Receipt Date: 20161129
  Transmission Date: 20170207
  Serious: Yes (Hospitalization)
  Sender: FDA-Public Use
  Company Number: GB-BIOGEN-2016BI00220837

PATIENT
  Sex: Female

DRUGS (1)
  1. AVONEX [Suspect]
     Active Substance: INTERFERON BETA-1A
     Indication: MULTIPLE SCLEROSIS
     Route: 030
     Dates: start: 20100524

REACTIONS (7)
  - Nephrolithiasis [Unknown]
  - Sepsis [Unknown]
  - Calculus bladder [Unknown]
  - Mobility decreased [Unknown]
  - Lower respiratory tract infection [Unknown]
  - Urinary tract infection [Recovered/Resolved]
  - Blood test abnormal [Unknown]

NARRATIVE: CASE EVENT DATE: 2016
